FAERS Safety Report 8617438-9 (Version None)
Quarter: 2012Q3

REPORT INFORMATION
  Report Type: 
  Country: None (occurrence: None)
  Receive Date: 20120824
  Receipt Date: 20120803
  Transmission Date: 20120928
  Serious: No
  Sender: FDA-Public Use
  Company Number: US-009507513-1208USA003071

PATIENT

DRUGS (3)
  1. ARTHROTEC [Concomitant]
  2. MAXALT [Suspect]
     Indication: MIGRAINE
     Dosage: UNK
     Dates: start: 20120401, end: 20120716
  3. DOXYCYCLINE HCL [Concomitant]

REACTIONS (3)
  - FATIGUE [None]
  - BLOOD TESTOSTERONE DECREASED [None]
  - SPERM CONCENTRATION DECREASED [None]
